FAERS Safety Report 23406906 (Version 1)
Quarter: 2024Q1

REPORT INFORMATION
  Report Type: Spontaneous
  Country: US (occurrence: US)
  Receive Date: 20240116
  Receipt Date: 20240116
  Transmission Date: 20240410
  Serious: No
  Sender: FDA-Public Use
  Company Number: US-PFIZER INC-PV202400004641

PATIENT
  Sex: Female

DRUGS (3)
  1. XELJANZ [Suspect]
     Active Substance: TOFACITINIB CITRATE
     Indication: Cat scratch disease
  2. XELJANZ [Suspect]
     Active Substance: TOFACITINIB CITRATE
     Indication: Burning sensation
  3. XELJANZ [Suspect]
     Active Substance: TOFACITINIB CITRATE
     Indication: Vision blurred

REACTIONS (5)
  - Off label use [Unknown]
  - Drug effective for unapproved indication [Unknown]
  - Emotional distress [Unknown]
  - Pain [Unknown]
  - Auditory disorder [Unknown]
